FAERS Safety Report 14707202 (Version 11)
Quarter: 2019Q2

REPORT INFORMATION
  Report Type: Report from Study
  Country: None (occurrence: US)
  Receive Date: 20180403
  Receipt Date: 20190613
  Transmission Date: 20190711
  Serious: Yes (Hospitalization, Other)
  Sender: FDA-Public Use
  Company Number: US-ABBVIE-18K-163-2283726-00

PATIENT
  Age: 66 Year
  Sex: Female

DRUGS (4)
  1. HUMIRA [Suspect]
     Active Substance: ADALIMUMAB
     Indication: CROHN^S DISEASE
     Route: 058
     Dates: start: 2013
  2. HUMIRA [Suspect]
     Active Substance: ADALIMUMAB
     Route: 058
     Dates: start: 201803
  3. HUMIRA [Suspect]
     Active Substance: ADALIMUMAB
     Dosage: HUMIRA CITRATE FREE
     Route: 058
  4. PENTASA [Concomitant]
     Active Substance: MESALAMINE
     Indication: CROHN^S DISEASE

REACTIONS (19)
  - Food intolerance [Unknown]
  - Crohn^s disease [Not Recovered/Not Resolved]
  - Nausea [Unknown]
  - Large intestinal stenosis [Unknown]
  - Gastroenteritis viral [Unknown]
  - Uterine polyp [Recovered/Resolved]
  - Intestinal stenosis [Not Recovered/Not Resolved]
  - Intestinal ulcer [Not Recovered/Not Resolved]
  - Blood pressure increased [Recovered/Resolved]
  - Anal incontinence [Unknown]
  - Pain [Recovering/Resolving]
  - Biopsy intestine abnormal [Not Recovered/Not Resolved]
  - Gastrointestinal motility disorder [Unknown]
  - Intestinal obstruction [Recovered/Resolved]
  - Cough [Recovering/Resolving]
  - Infectious mononucleosis [Recovered/Resolved]
  - Constipation [Recovered/Resolved]
  - Tendonitis [Recovered/Resolved]
  - Anaemia [Unknown]

NARRATIVE: CASE EVENT DATE: 201707
